FAERS Safety Report 10599579 (Version 2)
Quarter: 2015Q1

REPORT INFORMATION
  Report Type: Spontaneous
  Country: US (occurrence: US)
  Receive Date: 20141121
  Receipt Date: 20150327
  Transmission Date: 20150720
  Serious: Yes (Other)
  Sender: FDA-Public Use
  Company Number: US-UCBSA-2014018948

PATIENT
  Age: 7 Decade
  Sex: Female

DRUGS (1)
  1. VIMPAT [Suspect]
     Active Substance: LACOSAMIDE
     Indication: CONVULSION PROPHYLAXIS
     Dosage: LOADED WITH 200 MG IV AND FOLLOWED WITH 100 MG IV
     Route: 042
     Dates: start: 2014, end: 2014

REACTIONS (1)
  - Atrioventricular block second degree [Recovered/Resolved]

NARRATIVE: CASE EVENT DATE: 2014
